FAERS Safety Report 9732849 (Version 2)
Quarter: 2013Q4

REPORT INFORMATION
  Report Type: Spontaneous
  Country: JP (occurrence: JP)
  Receive Date: 20131205
  Receipt Date: 20131211
  Transmission Date: 20140711
  Serious: Yes (Hospitalization)
  Sender: FDA-Public Use
  Company Number: JP-OTSUKA-JP-2013-15568

PATIENT
  Age: 70 Year
  Sex: Male

DRUGS (3)
  1. PLETAAL [Suspect]
     Indication: THROMBOSIS PROPHYLAXIS
     Dosage: 200 MG MILLIGRAM(S), DAILY DOSE
     Route: 048
  2. ASPIRIN [Suspect]
     Dosage: UNK
     Route: 065
  3. PLAVIX [Suspect]
     Dosage: UNK
     Route: 048

REACTIONS (2)
  - Vascular pseudoaneurysm [Recovered/Resolved]
  - Retroperitoneal haematoma [Recovered/Resolved]
